FAERS Safety Report 7997503-X (Version None)
Quarter: 2011Q4

REPORT INFORMATION
  Report Type: 
  Country: None (occurrence: None)
  Receive Date: 20111221
  Receipt Date: 20111221
  Transmission Date: 20120403
  Serious: No
  Sender: FDA-Public Use
  Company Number: None

PATIENT
  Sex: Female
  Weight: 74.842 kg

DRUGS (6)
  1. LEVOFLOXACIN [Suspect]
     Indication: GASTROINTESTINAL INFECTION
     Dosage: 1
     Route: 050
     Dates: start: 20111208, end: 20111213
  2. HYDROCODEINE [Concomitant]
  3. HEAT AND ICE AND ABSORBINE JR. [Concomitant]
  4. IBUPROFEN (ADVIL) [Concomitant]
  5. IBUPROFEN [Concomitant]
  6. STERIODS [Concomitant]

REACTIONS (8)
  - IMPAIRED WORK ABILITY [None]
  - SWELLING FACE [None]
  - NO THERAPEUTIC RESPONSE [None]
  - PAIN IN EXTREMITY [None]
  - FATIGUE [None]
  - ARTHRALGIA [None]
  - HEADACHE [None]
  - GAIT DISTURBANCE [None]
